FAERS Safety Report 8861804 (Version 2)
Quarter: 2013Q1

REPORT INFORMATION
  Report Type: Spontaneous
  Country: AU (occurrence: None)
  Receive Date: 20121023
  Receipt Date: 20121227
  Transmission Date: 20140127
  Serious: Yes (Hospitalization, Other)
  Sender: FDA-Public Use
  Company Number: AUR-APL-2012-04489

PATIENT
  Age: 84 Year
  Sex: Male

DRUGS (9)
  1. SIMVASTATIN (SIMVASTATIN) [Suspect]
     Indication: PRODUCT USED FOR UNKNOWN INDICATION
  2. COLCHICINE [Suspect]
     Indication: GOUT
  3. EZETIMIBE [Concomitant]
  4. AMLODIPINE (AMLODIPINE) [Concomitant]
  5. IRBESARTAN (IRBESARTAN) [Concomitant]
  6. HYDROCHLOROTHIAZIDE (HYDROCHLOROTHIAZIDE) [Concomitant]
  7. CLOPIDOGREL (CLOPIDOGREL) [Concomitant]
  8. RABEPRAZOLE (RABEPRAZOLE) [Concomitant]
  9. OXYCODONE (OXYCODONE) [Concomitant]

REACTIONS (12)
  - Myopathy [None]
  - Myalgia [None]
  - Muscular weakness [None]
  - Dysphagia [None]
  - Myoglobinuria [None]
  - Blood creatinine increased [None]
  - Pharyngeal disorder [None]
  - Colonic pseudo-obstruction [None]
  - Change of bowel habit [None]
  - Blood creatine phosphokinase increased [None]
  - Glomerular filtration rate decreased [None]
  - Potentiating drug interaction [None]
